FAERS Safety Report 14052135 (Version 6)
Quarter: 2019Q4

REPORT INFORMATION
  Report Type: Report from Study
  Country: KR (occurrence: KR)
  Receive Date: 20171005
  Receipt Date: 20191118
  Transmission Date: 20200122
  Serious: Yes (Other)
  Sender: FDA-Public Use
  Company Number: KR-009507513-1710KOR001195

PATIENT
  Age: 75 Year
  Sex: Male

DRUGS (22)
  1. FLUOROMETHOLONE. [Concomitant]
     Active Substance: FLUOROMETHOLONE
     Indication: INFECTION PROPHYLAXIS
     Dosage: 0.5 MILLILITER, PRN
     Route: 047
     Dates: start: 20170726, end: 20170726
  2. DAUNOCIN [Concomitant]
     Active Substance: DAUNORUBICIN HYDROCHLORIDE
     Indication: ACUTE MYELOID LEUKAEMIA
     Dosage: 38 MILLIGRAM, ONCE DAILY
     Route: 042
     Dates: start: 20170726, end: 20170728
  3. LASIX [Concomitant]
     Active Substance: FUROSEMIDE
     Indication: PROPHYLAXIS
     Dosage: 20 MILLIGRAM, ONCE DAILY
     Route: 048
     Dates: start: 17000728, end: 20170802
  4. SEPTRIN [Concomitant]
     Active Substance: SULFAMETHOXAZOLE\TRIMETHOPRIM
     Indication: INFECTION PROPHYLAXIS
     Dosage: 2 TABLETS, ONCE EVERY TWO DAYS
     Route: 048
     Dates: start: 20170728
  5. CARDIOXANE [Concomitant]
     Active Substance: DEXRAZOXANE HYDROCHLORIDE
     Dosage: 675 MILLIGRAM, QD
     Route: 042
     Dates: start: 20170727, end: 20170727
  6. CEFAZOLIN SODIUM. [Concomitant]
     Active Substance: CEFAZOLIN SODIUM
     Indication: INFECTION PROPHYLAXIS
     Dosage: 2 GRAM, BID
     Route: 042
     Dates: start: 20170727, end: 20170801
  7. MACPERAN [Concomitant]
     Active Substance: METOCLOPRAMIDE HYDROCHLORIDE
     Indication: PROPHYLAXIS OF NAUSEA AND VOMITING
     Dosage: 10 MILLIGRAM, ONCE DAILY
     Route: 042
     Dates: start: 20170726, end: 20170727
  8. PLAKON [Concomitant]
     Indication: PROPHYLAXIS
     Dosage: 3 MILLIGRAM, QD, CONCENTRATION: 3MG/2ML
     Route: 042
     Dates: start: 20170726, end: 20170728
  9. ALOXI [Concomitant]
     Active Substance: PALONOSETRON HYDROCHLORIDE
     Dosage: 5 MILLILITER, ONCE DAILY
     Route: 042
     Dates: start: 20170809, end: 20170809
  10. LASIX [Concomitant]
     Active Substance: FUROSEMIDE
     Dosage: 40 MILLIGRAM, QD
     Dates: start: 20170802, end: 20170816
  11. TRANEXAMIC ACID. [Concomitant]
     Active Substance: TRANEXAMIC ACID
     Indication: HAEMORRHAGE PROPHYLAXIS
     Dosage: 500 MILLIGRAM, QD, CONCENTRATION: 500MG/5ML
     Route: 042
     Dates: start: 20170727, end: 20170728
  12. ZOYLEX [Concomitant]
     Indication: INFECTION PROPHYLAXIS
     Dosage: 200 MILLIGRAM, TWICE A DAY
     Route: 048
     Dates: start: 20170731
  13. TABAXIN [Concomitant]
     Active Substance: PIPERACILLIN SODIUM\TAZOBACTAM SODIUM
     Indication: INFECTION PROPHYLAXIS
     Dosage: 4.5 GRAM, QD
     Route: 042
     Dates: start: 20170801, end: 20170802
  14. NOXAFIL [Suspect]
     Active Substance: POSACONAZOLE
     Dosage: 300 MG, ONCE A DAY
     Route: 048
     Dates: start: 20170727, end: 20170820
  15. CARDIOXANE [Concomitant]
     Active Substance: DEXRAZOXANE HYDROCHLORIDE
     Indication: CARDIOTOXICITY
     Dosage: 865 MILLIGRAM, QD
     Route: 042
     Dates: start: 20170726, end: 20170726
  16. PLAKON [Concomitant]
     Indication: PROPHYLAXIS
     Dosage: 3 MILLIGRAM, QD, CONCENTRATION: 3MG/2ML
     Route: 042
     Dates: start: 20170722, end: 20170725
  17. ZOYLEX [Concomitant]
     Indication: INFECTION PROPHYLAXIS
     Dosage: 400 MILLIGRAM, BID
     Route: 048
     Dates: start: 20170726, end: 20170730
  18. ZYLORIC [Concomitant]
     Active Substance: ALLOPURINOL
     Indication: PROPHYLAXIS
     Dosage: 200 MILLIGRAM, QD
     Route: 048
     Dates: start: 20170727, end: 20170731
  19. NOXAFIL [Suspect]
     Active Substance: POSACONAZOLE
     Indication: ANTIFUNGAL PROPHYLAXIS
     Dosage: 300 MG, TWICE A DAY
     Route: 048
     Dates: start: 20170726, end: 20170726
  20. TRIDOL (TRAMADOL HYDROCHLORIDE) [Concomitant]
     Indication: PAIN PROPHYLAXIS
     Dosage: 50 MILLIGRAM, QD, CONCENTRATION: 50MG/ML
     Route: 042
     Dates: start: 20170726, end: 20170726
  21. ALOXI [Concomitant]
     Active Substance: PALONOSETRON HYDROCHLORIDE
     Indication: PROPHYLAXIS OF NAUSEA AND VOMITING
     Dosage: 5 MILLILITER, ONCE DAILY
     Route: 042
     Dates: start: 20170726, end: 20170726
  22. CYTARABINE. [Concomitant]
     Active Substance: CYTARABINE
     Indication: ACUTE MYELOID LEUKAEMIA
     Dosage: 173 MILLIGRAM, ONCE DAILY
     Route: 042
     Dates: start: 20170726, end: 20170730

REACTIONS (4)
  - Hypokalaemia [Recovered/Resolved]
  - Hypophosphataemia [Recovered/Resolved]
  - Febrile neutropenia [Recovered/Resolved]
  - Cough [Recovered/Resolved]

NARRATIVE: CASE EVENT DATE: 20170803
